FAERS Safety Report 25654657 (Version 1)
Quarter: 2025Q3

REPORT INFORMATION
  Report Type: Spontaneous
  Country: MY (occurrence: MY)
  Receive Date: 20250807
  Receipt Date: 20250807
  Transmission Date: 20251020
  Serious: Yes (Other)
  Sender: ALEXION PHARMACEUTICALS
  Company Number: MY-AstraZeneca-CH-00714111A

PATIENT
  Age: 64 Year
  Sex: Male
  Weight: 48 kg

DRUGS (4)
  1. ULTOMIRIS [Suspect]
     Active Substance: RAVULIZUMAB-CWVZ
     Indication: Paroxysmal nocturnal haemoglobinuria
     Dosage: 3000 MILLIGRAM, Q8W
     Dates: start: 20170323
  2. CYCLOSPORINE [Concomitant]
     Active Substance: CYCLOSPORINE
     Dosage: 100 MILLIGRAM, QD
     Route: 065
  3. PENICILLIN V [Concomitant]
     Active Substance: PENICILLIN V
     Dosage: 500 MILLIGRAM, BID
     Route: 065
  4. FOLIC ACID [Concomitant]
     Active Substance: FOLIC ACID
     Dosage: 5 MILLIGRAM, QD
     Route: 065

REACTIONS (1)
  - Filariasis [Recovered/Resolved]

NARRATIVE: CASE EVENT DATE: 20240427
